FAERS Safety Report 18414553 (Version 1)
Quarter: 2020Q4

REPORT INFORMATION
  Report Type: Spontaneous
  Country: DE (occurrence: DE)
  Receive Date: 20201022
  Receipt Date: 20201022
  Transmission Date: 20210114
  Serious: Yes (Hospitalization, Other)
  Sender: FDA-Public Use
  Company Number: DE-ACCORD-205798

PATIENT
  Age: 59 Year
  Sex: Male
  Weight: 70 kg

DRUGS (10)
  1. SALBUTAMOL [Concomitant]
     Active Substance: ALBUTEROL
     Indication: ASTHMA
     Route: 055
     Dates: start: 2018
  2. FOSTER [Concomitant]
     Active Substance: BECLOMETHASONE\FORMOTEROL
     Indication: ASTHMA
     Route: 055
     Dates: start: 2018
  3. EXFORGE [Concomitant]
     Active Substance: AMLODIPINE BESYLATE\VALSARTAN
     Route: 048
  4. SPIRIVA [Concomitant]
     Active Substance: TIOTROPIUM BROMIDE MONOHYDRATE
     Indication: ASTHMA
     Route: 055
     Dates: start: 2018
  5. ASPIRIN. [Concomitant]
     Active Substance: ASPIRIN
     Dosage: DAILY DOSE: 100 MG MILLGRAM(S) EVERY DAYS
     Route: 048
  6. MONTELUKAST [Suspect]
     Active Substance: MONTELUKAST SODIUM
     Indication: ASTHMA
     Route: 048
     Dates: start: 20200120, end: 20200806
  7. KREON [Concomitant]
     Active Substance: PANCRELIPASE
     Dosage: DAILY DOSE: 75000 IU INTERNATIONAL UNIT(S) EVERY DAYS 3 SEPARATED DOSES
     Route: 048
  8. NEBIVOLOL. [Concomitant]
     Active Substance: NEBIVOLOL
     Route: 048
  9. ROSUZET [Concomitant]
     Active Substance: EZETIMIBE\ROSUVASTATIN
     Dosage: DAILY DOSE: 1 DF DOSAGE FORM EVERY DAYS
     Route: 048
  10. ABASAGLAR [Concomitant]
     Active Substance: INSULIN GLARGINE

REACTIONS (2)
  - Acute abdomen [Recovered/Resolved]
  - Pancreatitis acute [Recovering/Resolving]

NARRATIVE: CASE EVENT DATE: 20200725
